FAERS Safety Report 8919824 (Version 1)
Quarter: 2012Q4

REPORT INFORMATION
  Report Type: Spontaneous
  Country: CA (occurrence: None)
  Receive Date: 20121114
  Receipt Date: 20121114
  Transmission Date: 20130627
  Serious: Yes (Other)
  Sender: FDA-Public Use
  Company Number: 2012-CA-0015

PATIENT
  Age: 50 Year
  Sex: Male

DRUGS (2)
  1. ABSTRAL [Suspect]
     Indication: PAIN
     Route: 060
  2. ABSTRAL [Suspect]
     Indication: OFF LABEL USE
     Route: 060

REACTIONS (2)
  - Off label use [None]
  - Drug abuse [None]
